FAERS Safety Report 10158609 (Version 1)
Quarter: 2014Q2

REPORT INFORMATION
  Report Type: Spontaneous
  Country: GB (occurrence: GB)
  Receive Date: 20140508
  Receipt Date: 20140508
  Transmission Date: 20141212
  Serious: Yes (Other)
  Sender: FDA-Public Use
  Company Number: PHHY2014GB053472

PATIENT
  Sex: Male

DRUGS (2)
  1. MONTELUKAST SODIUM [Suspect]
     Indication: ASTHMA
  2. OXYBUTYNIN [Concomitant]

REACTIONS (2)
  - Pollakiuria [Not Recovered/Not Resolved]
  - Enuresis [Not Recovered/Not Resolved]
